FAERS Safety Report 24109992 (Version 1)
Quarter: 2024Q3

REPORT INFORMATION
  Report Type: Spontaneous
  Country: US (occurrence: US)
  Receive Date: 20240718
  Receipt Date: 20240718
  Transmission Date: 20241017
  Serious: Yes (Death, Other)
  Sender: AMGEN
  Company Number: US-AMGEN-USASP2024138831

PATIENT
  Age: 18 Year
  Sex: Male

DRUGS (6)
  1. BEVACIZUMAB [Suspect]
     Active Substance: BEVACIZUMAB
     Indication: Medulloblastoma
     Dosage: UNK
     Route: 065
  2. VISMODEGIB [Concomitant]
     Active Substance: VISMODEGIB
     Indication: Medulloblastoma
     Dosage: UNK
     Route: 065
  3. TOPOTECAN [Concomitant]
     Active Substance: TOPOTECAN HYDROCHLORIDE
     Indication: Medulloblastoma
     Dosage: UNK
     Route: 065
  4. TEMODAL [Concomitant]
     Active Substance: TEMOZOLOMIDE
     Indication: Medulloblastoma
     Dosage: UNK
     Route: 065
  5. AXITINIB [Concomitant]
     Active Substance: AXITINIB
     Indication: Medulloblastoma
     Dosage: 1.7 MILLIGRAM/SQ. METER/ DOSE, BID
     Route: 065
  6. ETOPOSIDE [Concomitant]
     Active Substance: ETOPOSIDE
     Indication: Medulloblastoma
     Dosage: 30 MILLIGRAM/SQ. METER/DOSE, QD
     Route: 048

REACTIONS (4)
  - Medulloblastoma [Fatal]
  - Hypothyroidism [Unknown]
  - Off label use [Unknown]
  - Fatigue [Unknown]
